FAERS Safety Report 25050437 (Version 1)
Quarter: 2025Q1

REPORT INFORMATION
  Report Type: Spontaneous
  Country: GB (occurrence: GB)
  Receive Date: 20250307
  Receipt Date: 20250307
  Transmission Date: 20250409
  Serious: Yes (Hospitalization)
  Sender: MYLAN
  Company Number: GB-MYLANLABS-2025M1019601

PATIENT
  Sex: Female

DRUGS (11)
  1. RIFAMPIN [Interacting]
     Active Substance: RIFAMPIN
     Indication: Meningitis
  2. VORICONAZOLE [Interacting]
     Active Substance: VORICONAZOLE
     Indication: Aspergillus infection
  3. AMPHOTERICIN B [Concomitant]
     Active Substance: AMPHOTERICIN B
     Indication: Aspergillus infection
  4. CEFOTAXIME [Concomitant]
     Active Substance: CEFOTAXIME SODIUM
     Indication: Meningitis haemophilus
  5. METRONIDAZOLE [Concomitant]
     Active Substance: METRONIDAZOLE
     Indication: Meningitis haemophilus
  6. CEFTRIAXONE [Concomitant]
     Active Substance: CEFTRIAXONE
     Indication: Meningitis haemophilus
  7. MEROPENEM [Concomitant]
     Active Substance: MEROPENEM
     Indication: Meningitis haemophilus
  8. AMOXICILLIN\CLAVULANIC ACID [Concomitant]
     Active Substance: AMOXICILLIN\CLAVULANIC ACID
     Indication: Meningitis haemophilus
  9. AMIKACIN [Concomitant]
     Active Substance: AMIKACIN
     Indication: Meningitis haemophilus
  10. LINEZOLID [Concomitant]
     Active Substance: LINEZOLID
     Indication: Meningitis haemophilus
  11. VANCOMYCIN [Concomitant]
     Active Substance: VANCOMYCIN
     Indication: Meningitis haemophilus

REACTIONS (2)
  - Labelled drug-drug interaction medication error [Unknown]
  - Therapeutic response decreased [Unknown]
